FAERS Safety Report 16895542 (Version 1)
Quarter: 2019Q4

REPORT INFORMATION
  Report Type: Spontaneous
  Country: US (occurrence: US)
  Receive Date: 20191008
  Receipt Date: 20191008
  Transmission Date: 20200122
  Serious: No
  Sender: FDA-Public Use
  Company Number: US-PERRIGO-19US006178

PATIENT
  Age: 20 Year
  Sex: Female
  Weight: 148 kg

DRUGS (3)
  1. SARECYCLINE. [Concomitant]
     Active Substance: SARECYCLINE
     Dosage: 60 MG
     Route: 048
  2. LEVONORGESTREL. [Suspect]
     Active Substance: LEVONORGESTREL
     Indication: PROPHYLAXIS
     Dosage: 1.5 MG, SINGLE
     Route: 048
     Dates: start: 201812, end: 201812
  3. LEVONORGESTREL. [Suspect]
     Active Substance: LEVONORGESTREL
     Dosage: 1.5 MG, SINGLE
     Route: 048
     Dates: start: 20190508, end: 20190508

REACTIONS (5)
  - Vaginal discharge [Unknown]
  - Vaginal haemorrhage [Unknown]
  - Abdominal pain [Unknown]
  - Acne [Recovered/Resolved]
  - Breast tenderness [Unknown]

NARRATIVE: CASE EVENT DATE: 201812
